FAERS Safety Report 8249894-2 (Version None)
Quarter: 2012Q2

REPORT INFORMATION
  Report Type: 
  Country: None (occurrence: None)
  Receive Date: 20120402
  Receipt Date: 20120330
  Transmission Date: 20120825
  Serious: Yes (Death)
  Sender: FDA-Public Use
  Company Number: PHFR2012GB001720

PATIENT
  Sex: Female

DRUGS (7)
  1. LEVOTHYROXINE SODIUM [Concomitant]
     Dosage: 25 UG, UNK
     Route: 048
  2. CLOZARIL [Suspect]
     Dosage: 100 MG, UNK
     Dates: start: 20020101
  3. SERTRALINE HYDROCHLORIDE [Concomitant]
     Dosage: 100 MG, UNK
     Route: 048
  4. CLOZARIL [Suspect]
     Indication: SCHIZOPHRENIA
     Dates: start: 20010701
  5. DIGOXIN [Concomitant]
     Dosage: 187.5 UG, UNK
     Route: 048
  6. DIAZEPAM [Concomitant]
     Dosage: 2 MG, UNK
     Route: 048
  7. OMEPRAZOLE [Concomitant]
     Dosage: 10 MG, UNK
     Route: 048

REACTIONS (1)
  - DEATH [None]
